FAERS Safety Report 5474203-1 (Version None)
Quarter: 2007Q3

REPORT INFORMATION
  Report Type: 
  Country: None (occurrence: None)
  Receive Date: 20070928
  Receipt Date: 20070928
  Transmission Date: 20080115
  Serious: Yes (Other)
  Sender: FDA-Public Use
  Company Number: None

PATIENT
  Age: 49 Year
  Sex: Male

DRUGS (4)
  1. LEVAQUIN [Suspect]
     Dosage: 500MG/DAY
     Dates: start: 20060310, end: 20060317
  2. LEXAPRO [Suspect]
     Dosage: 20MG/DAY
     Dates: start: 20060310, end: 20060316
  3. XANAX [Concomitant]
  4. VICODIN [Concomitant]

REACTIONS (7)
  - HEPATIC FIBROSIS [None]
  - HEPATIC NECROSIS [None]
  - HEPATITIS C [None]
  - HEPATITIS C RNA POSITIVE [None]
  - HEPATOTOXICITY [None]
  - LIVER INJURY [None]
  - SUICIDAL IDEATION [None]
